FAERS Safety Report 6508053-1 (Version None)
Quarter: 2009Q4

REPORT INFORMATION
  Report Type: 
  Country: None (occurrence: None)
  Receive Date: 20091221
  Receipt Date: 20091210
  Transmission Date: 20100525
  Serious: No
  Sender: FDA-Public Use
  Company Number: US-B.I. PHARMACEUTICALS,INC./RIDGEFIELD-2009-BP-14526BP

PATIENT
  Age: 77 Year
  Sex: Male
  Weight: 81.7 kg

DRUGS (9)
  1. PERSANTINE [Suspect]
  2. COLD REMEDY ORAL MIST [Suspect]
     Dates: start: 20091106, end: 20091109
  3. MEVACOR [Concomitant]
  4. ZETIA [Concomitant]
  5. FISH OIL [Concomitant]
  6. ASCORBIC ACID [Concomitant]
  7. VITAMIN B COMPLEX CAP [Concomitant]
  8. VITAMIN B COMPLEX CAP [Concomitant]
  9. ZINC [Concomitant]
     Dosage: 75 MG

REACTIONS (1)
  - AGEUSIA [None]
